FAERS Safety Report 10012726 (Version 1)
Quarter: 2014Q1

REPORT INFORMATION
  Report Type: Spontaneous
  Country: US (occurrence: US)
  Receive Date: 20140314
  Receipt Date: 20140314
  Transmission Date: 20141002
  Serious: No
  Sender: FDA-Public Use
  Company Number: US-009507513-1402USA013671

PATIENT
  Age: 25 Year
  Sex: Male

DRUGS (1)
  1. TINACTIN LIQUID SPRAY [Suspect]
     Indication: TINEA PEDIS
     Dosage: UNK, PRN
     Route: 061

REACTIONS (3)
  - Swelling face [Recovered/Resolved]
  - Exposure via inhalation [Unknown]
  - Drug administered at inappropriate site [Unknown]
